FAERS Safety Report 9055029 (Version 1)
Quarter: 2013Q1

REPORT INFORMATION
  Report Type: Report from Study
  Country: IT (occurrence: IT)
  Receive Date: 20130206
  Receipt Date: 20130206
  Transmission Date: 20140127
  Serious: Yes (Other)
  Sender: FDA-Public Use
  Company Number: IT-ROCHE-1184409

PATIENT
  Age: 30 Year
  Sex: Female
  Weight: 70 kg

DRUGS (2)
  1. VEMURAFENIB [Suspect]
     Indication: METASTATIC MALIGNANT MELANOMA
     Route: 048
     Dates: start: 201207
  2. OXYCODONE [Concomitant]
     Indication: PAIN
     Route: 065
     Dates: start: 201206

REACTIONS (2)
  - Cholecystitis [Recovered/Resolved]
  - Gallbladder empyema [Recovered/Resolved]
